FAERS Safety Report 12511558 (Version 2)
Quarter: 2016Q3

REPORT INFORMATION
  Report Type: Spontaneous
  Country: AU (occurrence: AU)
  Receive Date: 20160629
  Receipt Date: 20160920
  Transmission Date: 20161109
  Serious: Yes (Hospitalization)
  Sender: FDA-Public Use
  Company Number: AU-AMGEN-AUSSP2016063900

PATIENT
  Age: 76 Year
  Sex: Female
  Weight: 64.99 kg

DRUGS (9)
  1. ENBREL [Suspect]
     Active Substance: ETANERCEPT
     Indication: RHEUMATOID ARTHRITIS
     Dosage: 50 MG, WEEKLY
     Route: 065
     Dates: start: 2008
  2. ENBREL [Suspect]
     Active Substance: ETANERCEPT
     Dosage: 50 MG, FORTNIGHTLY
     Route: 065
     Dates: start: 2013, end: 201511
  3. NEXIUM [Concomitant]
     Active Substance: ESOMEPRAZOLE MAGNESIUM
     Dosage: UNK
  4. COVERSYL [Concomitant]
     Active Substance: PERINDOPRIL
     Dosage: UNK
     Dates: end: 20151128
  5. NORMISON [Concomitant]
     Active Substance: TEMAZEPAM
     Dosage: 10 MG, 1X/DAY
  6. DIAZEPAM. [Concomitant]
     Active Substance: DIAZEPAM
     Dosage: 5 MG, 0.5 TO 1 WHEN NECESSARY
  7. HIPREX [Concomitant]
     Active Substance: METHENAMINE HIPPURATE
     Dosage: 1 G, 2X/DAY
  8. PROLIA [Concomitant]
     Active Substance: DENOSUMAB
     Indication: RHEUMATOID ARTHRITIS
     Dosage: 60 MG/ML, 1 EVERY 6 MONTHS
  9. ASPIRIN. [Concomitant]
     Active Substance: ASPIRIN
     Dosage: 100 MG, DAILY

REACTIONS (3)
  - Platelet count decreased [Recovered/Resolved]
  - Bone marrow disorder [Recovered/Resolved]
  - White blood cell count decreased [Recovered/Resolved]
